FAERS Safety Report 15530336 (Version 2)
Quarter: 2018Q4

REPORT INFORMATION
  Report Type: Spontaneous
  Country: US (occurrence: US)
  Receive Date: 20181020
  Receipt Date: 20181212
  Transmission Date: 20190205
  Serious: Yes (Other)
  Sender: FDA-Public Use
  Company Number: US-TORRENT-00007055

PATIENT
  Age: 68 Year
  Sex: Male

DRUGS (5)
  1. PALIPERIDONE. [Suspect]
     Active Substance: PALIPERIDONE
     Indication: PSYCHIATRIC SYMPTOM
     Dosage: LONG-ACTING INJECTION (LAI) IN THE GLUTEAL MUSCLE
     Route: 030
  2. OLANZAPINE. [Suspect]
     Active Substance: OLANZAPINE
     Indication: PSYCHIATRIC SYMPTOM
     Dosage: UNKNOWN
     Route: 048
  3. RISPERIDONE. [Suspect]
     Active Substance: RISPERIDONE
     Indication: PSYCHIATRIC SYMPTOM
  4. DIVALPROEX [Suspect]
     Active Substance: DIVALPROEX SODIUM
     Indication: PSYCHIATRIC SYMPTOM
     Dosage: EXTENDED RELEASE
  5. BENZTROPINE. [Concomitant]
     Active Substance: BENZTROPINE
     Indication: EXTRAPYRAMIDAL DISORDER
     Route: 048

REACTIONS (3)
  - Therapeutic response decreased [Unknown]
  - Parkinsonism [Unknown]
  - Treatment noncompliance [Unknown]
